FAERS Safety Report 24732767 (Version 1)
Quarter: 2024Q4

REPORT INFORMATION
  Report Type: Report from Study
  Country: BR (occurrence: BR)
  Receive Date: 20241213
  Receipt Date: 20241213
  Transmission Date: 20250115
  Serious: Yes (Hospitalization)
  Sender: ABBVIE
  Company Number: BR-JNJFOC-20241225671

PATIENT
  Age: 79 Year
  Sex: Male

DRUGS (1)
  1. IMBRUVICA [Suspect]
     Active Substance: IBRUTINIB
     Indication: Chronic lymphocytic leukaemia
     Route: 048
     Dates: start: 20180104

REACTIONS (2)
  - Syncope [Unknown]
  - Bifascicular block [Unknown]

NARRATIVE: CASE EVENT DATE: 20220412
